FAERS Safety Report 19496124 (Version 1)
Quarter: 2021Q3

REPORT INFORMATION
  Report Type: Spontaneous
  Country: US (occurrence: US)
  Receive Date: 20210701
  Receipt Date: 20210701
  Transmission Date: 20211014
  Serious: Yes (Other)
  Sender: FDA-Public Use
  Company Number: None

PATIENT
  Age: 80 Year
  Sex: Female
  Weight: 60.8 kg

DRUGS (12)
  1. PROCHLORPERAZINE. [Concomitant]
     Active Substance: PROCHLORPERAZINE
  2. TYLENOL EXTRA STRENGTH [Concomitant]
     Active Substance: ACETAMINOPHEN
  3. TRAMADOL. [Concomitant]
     Active Substance: TRAMADOL
  4. AMLODIPINE [Concomitant]
     Active Substance: AMLODIPINE BESYLATE
  5. QUINAPRIL. [Concomitant]
     Active Substance: QUINAPRIL
  6. ONDANSETRON [Concomitant]
     Active Substance: ONDANSETRON
  7. HCTZ [Concomitant]
     Active Substance: HYDROCHLOROTHIAZIDE
  8. LORAZEPAM. [Concomitant]
     Active Substance: LORAZEPAM
  9. CAPECITABINE. [Suspect]
     Active Substance: CAPECITABINE
     Indication: BREAST CANCER
     Route: 048
     Dates: start: 20210603
  10. LASIX [Concomitant]
     Active Substance: FUROSEMIDE
  11. PROTONIX [Concomitant]
     Active Substance: PANTOPRAZOLE SODIUM
  12. HERCEPTIN [Concomitant]
     Active Substance: TRASTUZUMAB

REACTIONS (1)
  - Fatigue [None]

NARRATIVE: CASE EVENT DATE: 20210701
